FAERS Safety Report 22228262 (Version 1)
Quarter: 2023Q2

REPORT INFORMATION
  Report Type: Spontaneous
  Country: US (occurrence: US)
  Receive Date: 20230419
  Receipt Date: 20230419
  Transmission Date: 20230721
  Serious: No
  Sender: FDA-Public Use
  Company Number: US-PFIZER INC-PV202300069517

PATIENT
  Age: 49 Year
  Sex: Female

DRUGS (2)
  1. XELJANZ XR [Interacting]
     Active Substance: TOFACITINIB CITRATE
     Indication: Rheumatoid arthritis
     Dosage: (AT NIGHT)
  2. IMURAN [Interacting]
     Active Substance: AZATHIOPRINE
     Indication: Rheumatoid arthritis
     Dosage: (IN THE MORNING)

REACTIONS (2)
  - Labelled drug-drug interaction medication error [Unknown]
  - Drug interaction [Unknown]
